FAERS Safety Report 18031993 (Version 3)
Quarter: 2020Q3

REPORT INFORMATION
  Report Type: Spontaneous
  Country: FR (occurrence: FR)
  Receive Date: 20200716
  Receipt Date: 20200731
  Transmission Date: 20201103
  Serious: Yes (Death, Hospitalization)
  Sender: FDA-Public Use
  Company Number: FR-PFIZER INC-2020271087

PATIENT
  Age: 77 Year
  Sex: Male

DRUGS (8)
  1. DIFFU K [Concomitant]
     Active Substance: POTASSIUM CHLORIDE
     Dosage: UNK
  2. ELIQUIS [Concomitant]
     Active Substance: APIXABAN
     Dosage: 10 MG
  3. VYNDAQEL [Suspect]
     Active Substance: TAFAMIDIS MEGLUMINE
     Indication: CARDIAC AMYLOIDOSIS
     Dosage: 20 MG, DAILY
     Dates: end: 20200627
  4. ANAFRANIL [Concomitant]
     Active Substance: CLOMIPRAMINE HYDROCHLORIDE
     Dosage: 25
     Route: 048
  5. ELIQUIS [Concomitant]
     Active Substance: APIXABAN
     Dosage: 5 (1 DOSE FORM IN MORNING AND IN EVENING)
  6. COLCHIMAX [COLCHICINE;DICYCLOVERINE HYDROCHLORIDE] [Concomitant]
     Active Substance: COLCHICINE\DICYCLOMINE HYDROCHLORIDE
     Dosage: UNK
  7. INEXIUM [ESOMEPRAZOLE SODIUM] [Concomitant]
     Active Substance: ESOMEPRAZOLE SODIUM
     Dosage: 20
  8. LASILIX [FUROSEMIDE] [Concomitant]
     Active Substance: FUROSEMIDE
     Dosage: 500
     Route: 048

REACTIONS (4)
  - Disease progression [Fatal]
  - Cardiac failure [Fatal]
  - Atrial fibrillation [Fatal]
  - Cardiac amyloidosis [Fatal]

NARRATIVE: CASE EVENT DATE: 20200627
